FAERS Safety Report 4645959-2 (Version None)
Quarter: 2005Q2

REPORT INFORMATION
  Report Type: 
  Country: None (occurrence: None)
  Receive Date: 20050425
  Receipt Date: 20050407
  Transmission Date: 20051028
  Serious: Yes (Other)
  Sender: FDA-Public Use
  Company Number: L05-AUS-01420-01

PATIENT
  Sex: Male

DRUGS (2)
  1. PROPRANOLOL [Suspect]
  2. GRANULOCYTE COLONY-STIMULATING FACTOR (GRANULOCYTE COLONY STIMULATING [Suspect]

REACTIONS (7)
  - DERMATITIS PSORIASIFORM [None]
  - DRUG ERUPTION [None]
  - ECZEMA [None]
  - LICHENOID KERATOSIS [None]
  - RASH PAPULOSQUAMOUS [None]
  - RASH PRURITIC [None]
  - SCROTAL ULCER [None]
